FAERS Safety Report 6157029-5 (Version None)
Quarter: 2009Q2

REPORT INFORMATION
  Report Type: 
  Country: None (occurrence: None)
  Receive Date: 20090413
  Receipt Date: 20080104
  Transmission Date: 20091009
  Serious: Yes (Hospitalization, Other)
  Sender: FDA-Public Use
  Company Number: PERC20080088

PATIENT
  Age: 51 Year
  Sex: Female

DRUGS (7)
  1. PERCOCET [Suspect]
     Dosage: 40 TABS, ONCE
     Dates: start: 20071019, end: 20071019
  2. COVERSYL 1.25 [Suspect]
     Dosage: 20-30, ONCE
     Dates: start: 20071019, end: 20071019
  3. ATIVAN [Suspect]
     Dosage: 7, ONCE
     Dates: start: 20071019, end: 20071019
  4. ENOXAPARIN SODIUM [Suspect]
     Indication: KNEE ARTHROPLASTY
     Dosage: 30 MG, BID, SUBCUTANEOUS
     Route: 058
     Dates: start: 20070928, end: 20071009
  5. PLACEBO [Suspect]
     Indication: KNEE ARTHROPLASTY
     Dates: start: 20070928, end: 20071009
  6. MOBICOX [Concomitant]
  7. PARIET [Concomitant]

REACTIONS (13)
  - ALCOHOL USE [None]
  - BIPOLAR I DISORDER [None]
  - BLOOD PRESSURE INCREASED [None]
  - DEPRESSED MOOD [None]
  - EMOTIONAL DISTRESS [None]
  - HEART RATE INCREASED [None]
  - MAJOR DEPRESSION [None]
  - MULTIPLE DRUG OVERDOSE [None]
  - PSYCHOPATHIC PERSONALITY [None]
  - SINUS TACHYCARDIA [None]
  - SUICIDE ATTEMPT [None]
  - TACHYPHRENIA [None]
  - WHITE BLOOD CELL COUNT INCREASED [None]
